FAERS Safety Report 5381687-6 (Version None)
Quarter: 2007Q3

REPORT INFORMATION
  Report Type: 
  Country: None (occurrence: None)
  Receive Date: 20070705
  Receipt Date: 20070705
  Transmission Date: 20080115
  Serious: No
  Sender: FDA-Public Use
  Company Number: None

PATIENT
  Age: 78 Year
  Sex: Female
  Weight: 59.7 kg

DRUGS (10)
  1. CAPECITABINE   1000MG/M2   ROCHE LABORATORIES [Suspect]
     Indication: ADENOCARCINOMA PANCREAS
     Dosage: 1600MG  TWICE DAILY PO
     Route: 048
     Dates: start: 20070620, end: 20070701
  2. PANGESTYME ENZYMES [Concomitant]
  3. LIPITOR [Concomitant]
  4. ENALAPRIL MALEATE [Concomitant]
  5. OMEPRAZOLE [Concomitant]
  6. MULTI-VITAMIN [Concomitant]
  7. OMEGA 3 FISH OIL SUPPLEMENTS [Concomitant]
  8. NOVOLOG INSULIN 70/30 [Concomitant]
  9. CITRUCEL [Concomitant]
  10. VITAMIN E [Concomitant]

REACTIONS (1)
  - ABDOMINAL PAIN [None]
